FAERS Safety Report 6986924-X (Version None)
Quarter: 2010Q3

REPORT INFORMATION
  Report Type: 
  Country: None (occurrence: None)
  Receive Date: 20100915
  Receipt Date: 20090813
  Transmission Date: 20110219
  Serious: No
  Sender: FDA-Public Use
  Company Number: US-WYE-H10604409

PATIENT
  Sex: Male
  Weight: 86.26 kg

DRUGS (5)
  1. PRISTIQ [Suspect]
     Indication: DEPRESSION
     Route: 048
     Dates: start: 20090627
  2. METOPROLOL TARTRATE [Concomitant]
  3. LEVOTHROID [Concomitant]
  4. PRILOSEC [Concomitant]
  5. CRESTOR [Concomitant]

REACTIONS (1)
  - PARAESTHESIA [None]
